FAERS Safety Report 5711380-9 (Version None)
Quarter: 2008Q2

REPORT INFORMATION
  Report Type: 
  Country: None (occurrence: None)
  Receive Date: 20080421
  Receipt Date: 20080416
  Transmission Date: 20081010
  Serious: Yes (Disabling, Other)
  Sender: FDA-Public Use
  Company Number: US-TEVA-170303USA

PATIENT
  Age: 59 Year
  Sex: Female

DRUGS (2)
  1. ONXOL [Suspect]
     Indication: PAPILLARY SEROUS ENDOMETRIAL CARCINOMA
     Route: 065
  2. BEVACIZUMAB [Suspect]

REACTIONS (1)
  - OSTEOARTHRITIS [None]
